FAERS Safety Report 8308271-6 (Version None)
Quarter: 2012Q2

REPORT INFORMATION
  Report Type: 
  Country: None (occurrence: None)
  Receive Date: 20120424
  Receipt Date: 20120418
  Transmission Date: 20120825
  Serious: No
  Sender: FDA-Public Use
  Company Number: IT-ABBOTT-12P-083-0914669-00

PATIENT
  Sex: Female

DRUGS (5)
  1. RINAZINA [Suspect]
     Indication: INFLUENZA
     Dates: start: 20120220, end: 20120220
  2. METFORMIN HCL [Concomitant]
     Indication: PRODUCT USED FOR UNKNOWN INDICATION
  3. BYETTA [Concomitant]
     Indication: PRODUCT USED FOR UNKNOWN INDICATION
  4. CLARITHROMYCIN [Suspect]
     Indication: INFLUENZA
     Route: 048
     Dates: start: 20120214, end: 20120221
  5. SOLOSA [Concomitant]
     Indication: PRODUCT USED FOR UNKNOWN INDICATION
     Route: 048

REACTIONS (7)
  - SWELLING FACE [None]
  - VOMITING [None]
  - THROAT TIGHTNESS [None]
  - ADVERSE REACTION [None]
  - STATUS ASTHMATICUS [None]
  - NAUSEA [None]
  - DIARRHOEA [None]
